FAERS Safety Report 8571220-X (Version None)
Quarter: 2012Q3

REPORT INFORMATION
  Report Type: 
  Country: None (occurrence: None)
  Receive Date: 20120730
  Receipt Date: 20120730
  Transmission Date: 20120928
  Serious: Yes (Hospitalization)
  Sender: FDA-Public Use
  Company Number: None

PATIENT
  Age: 68 Year
  Sex: Male
  Weight: 84.6 kg

DRUGS (3)
  1. ASPIRIN AND DIPYRIDAMOLE [Suspect]
     Indication: CEREBROVASCULAR ACCIDENT PROPHYLAXIS
     Dosage: BID, PO
     Route: 048
     Dates: start: 20120530, end: 20120604
  2. ASPIRIN AND DIPYRIDAMOLE [Suspect]
     Indication: TRANSIENT ISCHAEMIC ATTACK
     Dosage: BID, PO
     Route: 048
     Dates: start: 20120530, end: 20120604
  3. LISINOPRIL [Suspect]
     Indication: HYPERTENSION
     Dosage: 5 MG, EVERY DAY, PO
     Route: 048
     Dates: start: 20120530, end: 20120604

REACTIONS (2)
  - ANGIOEDEMA [None]
  - LIP OEDEMA [None]
